FAERS Safety Report 23706548 (Version 8)
Quarter: 2025Q1

REPORT INFORMATION
  Report Type: Report from Study
  Country: US (occurrence: US)
  Receive Date: 20240404
  Receipt Date: 20250314
  Transmission Date: 20250408
  Serious: Yes (Hospitalization)
  Sender: INSMED
  Company Number: US-INSMED, INC.-2024-01283-US

PATIENT
  Sex: Female

DRUGS (2)
  1. ARIKAYCE [Suspect]
     Active Substance: AMIKACIN
     Indication: Product used for unknown indication
     Dosage: 590 MILLIGRAM, QD
     Route: 055
     Dates: start: 202208, end: 202409
  2. ARIKAYCE [Suspect]
     Active Substance: AMIKACIN
     Route: 055
     Dates: start: 2025

REACTIONS (14)
  - Intensive care [Unknown]
  - Hospitalisation [Unknown]
  - Hospitalisation [Unknown]
  - Dehydration [Unknown]
  - Sepsis [Unknown]
  - Colitis [Unknown]
  - Pneumonia [Unknown]
  - Pneumonia [Not Recovered/Not Resolved]
  - Abdominal pain [Unknown]
  - Diarrhoea [Unknown]
  - Cough [Unknown]
  - Dyspnoea [Unknown]
  - Rehabilitation therapy [Unknown]
  - Therapy interrupted [Unknown]
